FAERS Safety Report 8397077-8 (Version None)
Quarter: 2012Q2

REPORT INFORMATION
  Report Type: 
  Country: None (occurrence: None)
  Receive Date: 20120530
  Receipt Date: 20120517
  Transmission Date: 20120825
  Serious: Yes (Other)
  Sender: FDA-Public Use
  Company Number: US-FRI-1000030594

PATIENT
  Age: 65 Year
  Sex: Female

DRUGS (5)
  1. THYROID TAB [Suspect]
     Dosage: 60 MG
     Route: 048
     Dates: start: 20110901, end: 20111201
  2. SIMVASTATIN [Concomitant]
     Indication: BLOOD CHOLESTEROL INCREASED
  3. THYROID TAB [Suspect]
     Dosage: 45 MG
     Route: 048
     Dates: start: 20111201, end: 20120101
  4. THYROID TAB [Suspect]
     Dosage: 60 MG
     Route: 048
     Dates: start: 20120101
  5. THYROID TAB [Suspect]
     Indication: HYPOTHYROIDISM
     Dosage: 30 MG
     Route: 048
     Dates: start: 20090101, end: 20110901

REACTIONS (6)
  - BLOOD PRESSURE INCREASED [None]
  - INSOMNIA [None]
  - PALPITATIONS [None]
  - THYROID FUNCTION TEST ABNORMAL [None]
  - HYPERHIDROSIS [None]
  - HOT FLUSH [None]
